FAERS Safety Report 9498478 (Version 2)
Quarter: 2013Q3

REPORT INFORMATION
  Report Type: Spontaneous
  Country: GB (occurrence: GB)
  Receive Date: 20130904
  Receipt Date: 20130920
  Transmission Date: 20140515
  Serious: Yes (Hospitalization, Other)
  Sender: FDA-Public Use
  Company Number: GB-JNJFOC-20130815523

PATIENT
  Age: 48 Year
  Sex: Female

DRUGS (3)
  1. INFLIXIMAB, RECOMBINANT [Suspect]
     Indication: CROHN^S DISEASE
     Route: 042
  2. AZATHIOPRINE [Suspect]
     Indication: CROHN^S DISEASE
     Route: 065
  3. CORTICOSTEROIDS NOS [Suspect]
     Indication: CROHN^S DISEASE
     Route: 065

REACTIONS (2)
  - Liver abscess [Recovering/Resolving]
  - Non-Hodgkin^s lymphoma [Recovering/Resolving]
